FAERS Safety Report 25734265 (Version 2)
Quarter: 2025Q3

REPORT INFORMATION
  Report Type: Report from Study
  Country: US (occurrence: US)
  Receive Date: 20250828
  Receipt Date: 20250901
  Transmission Date: 20251020
  Serious: Yes (Hospitalization)
  Sender: ABBVIE
  Company Number: US-ABBVIE-6432318

PATIENT
  Age: 70 Year
  Sex: Male

DRUGS (1)
  1. VYALEV [Suspect]
     Active Substance: FOSCARBIDOPA\FOSLEVODOPA
     Indication: Parkinson^s disease
     Route: 058
     Dates: start: 20250331

REACTIONS (10)
  - Rapid eye movement sleep behaviour disorder [Not Recovered/Not Resolved]
  - Psychotic behaviour [Recovered/Resolved]
  - Feeling of body temperature change [Not Recovered/Not Resolved]
  - COVID-19 [Recovering/Resolving]
  - Musculoskeletal stiffness [Not Recovered/Not Resolved]
  - Arthralgia [Not Recovered/Not Resolved]
  - Hallucination [Recovered/Resolved]
  - Tremor [Not Recovered/Not Resolved]
  - Product dose omission in error [Unknown]
  - Dizziness [Not Recovered/Not Resolved]

NARRATIVE: CASE EVENT DATE: 20250101
